FAERS Safety Report 6596363-1 (Version None)
Quarter: 2010Q1

REPORT INFORMATION
  Report Type: 
  Country: None (occurrence: None)
  Receive Date: 20100223
  Receipt Date: 20100219
  Transmission Date: 20100710
  Serious: Yes (Death, Other)
  Sender: FDA-Public Use
  Company Number: PHHY2010NO09965

PATIENT
  Sex: Male

DRUGS (3)
  1. TEGRETOL [Suspect]
     Indication: POLYNEUROPATHY
     Dosage: 100 MG DAILY
     Route: 048
     Dates: start: 20091201, end: 20100126
  2. PLAVIX [Concomitant]
     Indication: CORONARY ARTERY DISEASE
     Dosage: 75 MG DAILY
     Route: 048
     Dates: start: 20091117, end: 20100128
  3. CARVEDILOL [Concomitant]
     Indication: CARDIOVASCULAR DISORDER
     Route: 048
     Dates: start: 20091117, end: 20100130

REACTIONS (2)
  - DEATH [None]
  - THROMBOCYTOPENIA [None]
